FAERS Safety Report 8779699 (Version 3)
Quarter: 2013Q2

REPORT INFORMATION
  Report Type: Report from Study
  Country: JP (occurrence: JP)
  Receive Date: 20120911
  Receipt Date: 20130423
  Transmission Date: 20140414
  Serious: Yes (Hospitalization, Other)
  Sender: FDA-Public Use
  Company Number: JP-VERTEX PHARMACEUTICAL INC.-AE-2012-004267

PATIENT
  Age: 69 Year
  Sex: Male

DRUGS (12)
  1. VX-950 (TELAPREVIR) [Suspect]
     Indication: CHRONIC HEPATITIS C
     Dosage: 1500 MG, QD
     Route: 048
     Dates: start: 20120315, end: 20120319
  2. REBETOL [Suspect]
     Indication: CHRONIC HEPATITIS C
     Dosage: 400 MG, QD
     Route: 048
     Dates: start: 20120315, end: 20120319
  3. PEGINTRON [Suspect]
     Indication: CHRONIC HEPATITIS C
     Dosage: 0.6 ?G/KG, QW
     Route: 058
     Dates: start: 20120315, end: 20120319
  4. URSO [Concomitant]
     Dosage: 300 MG, QD
     Route: 048
     Dates: end: 20120318
  5. URSO [Concomitant]
     Dosage: 300 MG, QD
     Route: 048
     Dates: start: 20120321
  6. OLMETEC [Concomitant]
     Dosage: 10 MG, QD
     Route: 048
     Dates: end: 20120318
  7. OLMETEC [Concomitant]
     Dosage: 10 MG, QD
     Route: 048
     Dates: start: 20120321
  8. HUMALOG [Concomitant]
     Dosage: 14 UNITS (MORNING), 18 UNITS (DAYTIME), 16 UNITS (EVENING) PER DAY
     Route: 058
     Dates: end: 20120612
  9. LANTUS [Concomitant]
     Dosage: 14 DF, QD
     Route: 058
  10. TAKEPRON [Concomitant]
     Dosage: 1 VIAL, QD
     Route: 042
     Dates: start: 20120318, end: 20120321
  11. AMINOLEBAN EN [Concomitant]
     Dosage: 3 DF, QD
     Route: 048
     Dates: start: 20120322
  12. APIDRA [Concomitant]
     Dosage: 50 UNITS (MORNING), 15 UNITS (DAYTIME), 15 UNITS (EVENING) PER DAY
     Route: 058
     Dates: start: 20120613

REACTIONS (3)
  - Hepatic encephalopathy [Recovered/Resolved]
  - Renal impairment [Recovered/Resolved]
  - Hepatic encephalopathy [Recovered/Resolved]
